FAERS Safety Report 24861679 (Version 1)
Quarter: 2025Q1

REPORT INFORMATION
  Report Type: Report from Study
  Country: CA (occurrence: CA)
  Receive Date: 20250120
  Receipt Date: 20250120
  Transmission Date: 20250409
  Serious: Yes (Disabling, Other)
  Sender: CSL BEHRING
  Company Number: CA-BEH-2024174337

PATIENT
  Age: 40 Year
  Sex: Female
  Weight: 50 kg

DRUGS (3)
  1. HIZENTRA [Suspect]
     Active Substance: HUMAN IMMUNOGLOBULIN G
     Indication: Primary immunodeficiency syndrome
     Dosage: 5 G, QW
     Route: 058
     Dates: start: 20240521
  2. HIZENTRA [Suspect]
     Active Substance: HUMAN IMMUNOGLOBULIN G
     Dosage: 5 G, QW
     Route: 058
     Dates: start: 20240521
  3. HIZENTRA [Suspect]
     Active Substance: HUMAN IMMUNOGLOBULIN G
     Dosage: 5 G, QW
     Route: 065
     Dates: start: 20240521, end: 202411

REACTIONS (7)
  - Disability [Not Recovered/Not Resolved]
  - Condition aggravated [Not Recovered/Not Resolved]
  - Dysarthria [Not Recovered/Not Resolved]
  - Suicidal ideation [Not Recovered/Not Resolved]
  - Pain [Not Recovered/Not Resolved]
  - Underweight [Unknown]
  - Therapy cessation [Unknown]

NARRATIVE: CASE EVENT DATE: 20241101
